FAERS Safety Report 5449066-0 (Version None)
Quarter: 2007Q3

REPORT INFORMATION
  Report Type: 
  Country: None (occurrence: None)
  Receive Date: 20070911
  Receipt Date: 20070831
  Transmission Date: 20080115
  Serious: Yes (Hospitalization)
  Sender: FDA-Public Use
  Company Number: FR-JNJFOC-20070806447

PATIENT
  Age: 94 Year
  Sex: Female

DRUGS (6)
  1. TAVANIC [Suspect]
     Indication: DRUG USE FOR UNKNOWN INDICATION
     Route: 042
  2. INIPOMP [Concomitant]
     Route: 048
  3. ZOCOR [Concomitant]
     Route: 048
  4. SERETIDE [Concomitant]
     Route: 002
  5. KARDEGIC [Concomitant]
     Route: 048
  6. AMLODIPINE BESYLATE [Concomitant]
     Route: 048

REACTIONS (1)
  - LOSS OF CONSCIOUSNESS [None]
